FAERS Safety Report 17577529 (Version 1)
Quarter: 2020Q1

REPORT INFORMATION
  Report Type: Spontaneous
  Country: US (occurrence: US)
  Receive Date: 20200324
  Receipt Date: 20200324
  Transmission Date: 20200409
  Serious: Yes (Disabling)
  Sender: FDA-Public Use
  Company Number: None

PATIENT
  Age: 65 Year
  Sex: Female
  Weight: 41.85 kg

DRUGS (14)
  1. MULTIVITAMIN LIQUID D3 (CHOLECALCIFEROL) [Concomitant]
  2. ZEAXANTHIN [Concomitant]
     Active Substance: ZEAXANTHIN
  3. NITROFURANTOIN. [Suspect]
     Active Substance: NITROFURANTOIN
  4. PANTOTHENIC ACID [Concomitant]
     Active Substance: PANTOTHENIC ACID
  5. METHYL COBALAMIN (B12) [Concomitant]
  6. FISH OIL [Concomitant]
     Active Substance: FISH OIL
  7. HIGH POTENCY BROMELAIN DIGESTIVE AID [Concomitant]
  8. LUTEIN [Concomitant]
     Active Substance: LUTEIN
  9. ESTER-C [Concomitant]
  10. CIPROFLOXACIN 500 MG TABLETS [Suspect]
     Active Substance: CIPROFLOXACIN
     Indication: KIDNEY INFECTION
     Dosage: ?          QUANTITY:1 TABLET(S);?
     Route: 048
     Dates: start: 20200311, end: 20200313
  11. METHYL FOLATE [Concomitant]
     Active Substance: LEVOMEFOLATE CALCIUM
  12. CALCIUM [Concomitant]
     Active Substance: CALCIUM
  13. PROBIOTIC [Concomitant]
     Active Substance: PROBIOTICS NOS
  14. MAGNESIUM [Concomitant]
     Active Substance: MAGNESIUM

REACTIONS (22)
  - Insomnia [None]
  - Heart rate irregular [None]
  - Muscular weakness [None]
  - Thirst [None]
  - Palpitations [None]
  - Disturbance in attention [None]
  - Arthralgia [None]
  - Neck pain [None]
  - Hunger [None]
  - Dry mouth [None]
  - Nausea [None]
  - Rash [None]
  - Abdominal pain upper [None]
  - Dyspepsia [None]
  - Abdominal discomfort [None]
  - Dizziness [None]
  - Tinnitus [None]
  - Feeling cold [None]
  - Dyspnoea [None]
  - Asthenia [None]
  - Poor quality sleep [None]
  - Gait disturbance [None]

NARRATIVE: CASE EVENT DATE: 20200312
